FAERS Safety Report 4297077-3 (Version None)
Quarter: 2004Q1

REPORT INFORMATION
  Report Type: 
  Country: None (occurrence: None)
  Receive Date: 20040126
  Receipt Date: 20030902
  Transmission Date: 20041129
  Serious: No
  Sender: FDA-Public Use
  Company Number: USA030946025

PATIENT
  Age: 11 Year
  Sex: Male

DRUGS (2)
  1. STRATTERA [Suspect]
     Indication: ATTENTION DEFICIT/HYPERACTIVITY DISORDER
  2. CONCERTA (METHYLPHENIDATE HYDRPCHLORIDE) [Concomitant]

REACTIONS (3)
  - FEELING ABNORMAL [None]
  - LETHARGY [None]
  - PALLOR [None]
